FAERS Safety Report 9206798 (Version 3)
Quarter: 2013Q2

REPORT INFORMATION
  Report Type: Spontaneous
  Country: US (occurrence: US)
  Receive Date: 20130403
  Receipt Date: 20130514
  Transmission Date: 20140414
  Serious: Yes (Death, Hospitalization)
  Sender: FDA-Public Use
  Company Number: US-VERTEX PHARMACEUTICALS INC.-2013-004371

PATIENT
  Age: 49 Year
  Sex: Female
  Weight: 61 kg

DRUGS (30)
  1. INCIVEK [Suspect]
     Indication: HEPATITIS C
     Dosage: 750 MG, TID
     Route: 048
     Dates: start: 20130313
  2. PEGINTERFERON ALFA [Suspect]
     Indication: HEPATITIS C
     Dosage: 180 ?G, QW
     Route: 058
     Dates: start: 20130313
  3. RIBAVIRIN [Suspect]
     Indication: HEPATITIS C
     Dosage: 400 MG, BID
     Route: 048
     Dates: start: 20130313
  4. PHENERGAN [Concomitant]
     Dosage: 25 MG, TID
     Route: 048
  5. ZITHROMAX [Concomitant]
  6. CEFTRIAXONE [Concomitant]
  7. FAMOTIDINE [Concomitant]
  8. LACTULOSE [Concomitant]
  9. SODIUM CHLORIDE [Concomitant]
  10. ALBUTEROL W/IPRATROPIUM [Concomitant]
  11. CALCIUM GLUCONATE [Concomitant]
  12. CHLORHEXIDINE [Concomitant]
  13. DEXTROSE [Concomitant]
  14. MIDAZOLAM [Concomitant]
  15. NITROGLYCERIN [Concomitant]
  16. NALOXONE [Concomitant]
  17. NOREPINEPHRINE [Concomitant]
  18. OCTREOTIDE [Concomitant]
  19. PHENYLEPHRINE [Concomitant]
  20. PANTOPRAZOLE [Concomitant]
  21. POTASSIUM PHOSPHATE [Concomitant]
  22. POTASSIUM CHLORIDE [Concomitant]
  23. SODIUM BICARBONATE [Concomitant]
  24. VASOPRESSIN [Concomitant]
  25. INSULIN REGULAR [Concomitant]
  26. ETOMIDATE [Concomitant]
  27. FENATYL [Concomitant]
  28. HEPARIN [Concomitant]
  29. HYDROCORTISONE SODIUM SUCCINATE [Concomitant]
  30. MAGNESIUM SULPHATE [Concomitant]

REACTIONS (16)
  - Multi-organ failure [Fatal]
  - Pneumonia [Not Recovered/Not Resolved]
  - Ischaemic gastritis [Not Recovered/Not Resolved]
  - Acute respiratory distress syndrome [Not Recovered/Not Resolved]
  - Septic shock [Not Recovered/Not Resolved]
  - Pneumocystis jirovecii pneumonia [Not Recovered/Not Resolved]
  - Abdominal distension [Not Recovered/Not Resolved]
  - Ascites [Not Recovered/Not Resolved]
  - Dyspnoea [Not Recovered/Not Resolved]
  - Abdominal pain upper [Not Recovered/Not Resolved]
  - Pyrexia [Recovered/Resolved]
  - Nasopharyngitis [Not Recovered/Not Resolved]
  - Stomatitis [Not Recovered/Not Resolved]
  - Oral pain [Not Recovered/Not Resolved]
  - Hypophagia [Not Recovered/Not Resolved]
  - Fatigue [Not Recovered/Not Resolved]
